FAERS Safety Report 8851783 (Version 1)
Quarter: 2012Q4

REPORT INFORMATION
  Report Type: Spontaneous
  Country: US (occurrence: None)
  Receive Date: 20121018
  Receipt Date: 20121018
  Transmission Date: 20130627
  Serious: Yes (Disabling)
  Sender: FDA-Public Use
  Company Number: None

PATIENT
  Age: 30 Year
  Sex: Male
  Weight: 72.58 kg

DRUGS (1)
  1. CIPRO [Suspect]
     Indication: UTI
     Route: 048
     Dates: start: 200910

REACTIONS (5)
  - Connective tissue disorder [None]
  - Muscle rupture [None]
  - Skin disorder [None]
  - Tendon disorder [None]
  - Nervous system disorder [None]
